FAERS Safety Report 17808165 (Version 1)
Quarter: 2020Q2

REPORT INFORMATION
  Report Type: Spontaneous
  Country: US (occurrence: US)
  Receive Date: 20200520
  Receipt Date: 20200520
  Transmission Date: 20200714
  Serious: Yes (Other)
  Sender: FDA-Public Use
  Company Number: None

PATIENT
  Age: 72 Year
  Sex: Female
  Weight: 78.75 kg

DRUGS (22)
  1. FLONASE [Concomitant]
     Active Substance: FLUTICASONE PROPIONATE
  2. ANASTROZOLE. [Concomitant]
     Active Substance: ANASTROZOLE
  3. PROMETHAZINE [Concomitant]
     Active Substance: PROMETHAZINE HYDROCHLORIDE
  4. ANUSOL-HC [Concomitant]
     Active Substance: HYDROCORTISONE
  5. ALBUTEROL. [Concomitant]
     Active Substance: ALBUTEROL
  6. VASOTEC [Concomitant]
     Active Substance: ENALAPRIL MALEATE
  7. VITAMIN B12 [Concomitant]
     Active Substance: CYANOCOBALAMIN
  8. ONDANSETRON [Concomitant]
     Active Substance: ONDANSETRON
  9. LORAZEPAM. [Concomitant]
     Active Substance: LORAZEPAM
  10. VITAMIN D [Concomitant]
     Active Substance: VITAMIN D NOS
  11. IBRANCE [Suspect]
     Active Substance: PALBOCICLIB
     Indication: BREAST CANCER
     Route: 048
     Dates: start: 20200124
  12. LEVOFLOXACIN. [Concomitant]
     Active Substance: LEVOFLOXACIN
  13. FUROSEMIDE. [Concomitant]
     Active Substance: FUROSEMIDE
  14. TAMSULOSIN [Concomitant]
     Active Substance: TAMSULOSIN
  15. HYDROCODONE-APAP [Concomitant]
     Active Substance: ACETAMINOPHEN\HYDROCODONE
  16. FERROUS SULFATE. [Concomitant]
     Active Substance: FERROUS SULFATE
  17. ZANAFLEX [Concomitant]
     Active Substance: TIZANIDINE HYDROCHLORIDE
  18. OMEPRAZOLE. [Concomitant]
     Active Substance: OMEPRAZOLE
  19. HYDROCORTISONE. [Concomitant]
     Active Substance: HYDROCORTISONE
  20. LEXAPRO [Concomitant]
     Active Substance: ESCITALOPRAM OXALATE
  21. METOPROLOL. [Concomitant]
     Active Substance: METOPROLOL
  22. LEVOTHYROXINE. [Concomitant]
     Active Substance: LEVOTHYROXINE

REACTIONS (1)
  - Urinary tract infection [None]
